FAERS Safety Report 12328441 (Version 1)
Quarter: 2016Q2

REPORT INFORMATION
  Report Type: Spontaneous
  Country: US (occurrence: US)
  Receive Date: 20160503
  Receipt Date: 20160503
  Transmission Date: 20160815
  Serious: No
  Sender: FDA-Public Use
  Company Number: US-BEH-2014047089

PATIENT
  Sex: Female
  Weight: 69 kg

DRUGS (9)
  1. ACETAMINOPHEN. [Concomitant]
     Active Substance: ACETAMINOPHEN
  2. SPIRIVA [Concomitant]
     Active Substance: TIOTROPIUM BROMIDE MONOHYDRATE
  3. HIZENTRA [Suspect]
     Active Substance: HUMAN IMMUNOGLOBULIN G
     Route: 058
     Dates: start: 20150202
  4. LIDOCAINE. [Concomitant]
     Active Substance: LIDOCAINE
  5. HIZENTRA [Suspect]
     Active Substance: HUMAN IMMUNOGLOBULIN G
     Indication: IMMUNODEFICIENCY COMMON VARIABLE
     Route: 058
  6. DIPHENHYDRAMINE. [Concomitant]
     Active Substance: DIPHENHYDRAMINE
  7. SYMBICORT [Concomitant]
     Active Substance: BUDESONIDE\FORMOTEROL FUMARATE DIHYDRATE
  8. BENICAR [Concomitant]
     Active Substance: OLMESARTAN MEDOXOMIL
  9. EPIPEN [Concomitant]
     Active Substance: EPINEPHRINE

REACTIONS (3)
  - Fatigue [Unknown]
  - Injection site swelling [Unknown]
  - Injection site pain [Unknown]
